FAERS Safety Report 5465354-6 (Version None)
Quarter: 2007Q3

REPORT INFORMATION
  Report Type: 
  Country: None (occurrence: None)
  Receive Date: 20070920
  Receipt Date: 20070920
  Transmission Date: 20080115
  Serious: Yes (Other)
  Sender: FDA-Public Use
  Company Number: None

PATIENT
  Sex: Male

DRUGS (2)
  1. PROZAC [Suspect]
     Dosage: 10 MG DAILY PO
     Route: 048
     Dates: start: 20070531, end: 20070626
  2. SEROQUEL [Suspect]
     Dosage: 100 MG H.S. PO
     Route: 048

REACTIONS (1)
  - SUICIDAL IDEATION [None]
